FAERS Safety Report 7999084-3 (Version None)
Quarter: 2011Q4

REPORT INFORMATION
  Report Type: 
  Country: None (occurrence: None)
  Receive Date: 20111221
  Receipt Date: 20111214
  Transmission Date: 20120403
  Serious: Yes (Hospitalization, Other)
  Sender: FDA-Public Use
  Company Number: BR-ABBOTT-10P-020-0627712-00

PATIENT
  Sex: Female
  Weight: 80 kg

DRUGS (12)
  1. HUMIRA [Suspect]
     Indication: CROHN'S DISEASE
     Dosage: INDUCTION DOSE: 160MG
     Route: 058
     Dates: start: 20090301, end: 20090301
  2. HUMIRA [Suspect]
     Dosage: INDUCTION DOSE: 80MG
     Route: 058
     Dates: start: 20090301
  3. SUPRADYN [Concomitant]
     Indication: VITAMIN SUPPLEMENTATION
     Route: 048
     Dates: start: 20100101
  4. HUMIRA [Suspect]
     Route: 058
  5. HUMIRA [Suspect]
     Route: 058
     Dates: end: 20101201
  6. LOPERAMIDE HCL [Concomitant]
     Indication: DIARRHOEA
     Route: 048
  7. LOPERAMIDE HCL [Concomitant]
     Route: 048
  8. AMITRIPTYLINE HCL [Concomitant]
     Indication: OBSESSIVE-COMPULSIVE DISORDER
  9. CLONAZEPAM [Concomitant]
     Indication: SLEEP DISORDER THERAPY
     Dosage: 30 ML DAILY
     Route: 048
  10. LORAX [Concomitant]
     Indication: INSOMNIA
  11. ZIPRASIDONE HYDROCHLORIDE [Concomitant]
     Indication: INSOMNIA
     Dosage: 2 TABLETS PER DAY
  12. AMITRIPTYLINE HCL [Concomitant]
     Indication: DEPRESSION
     Route: 048

REACTIONS (8)
  - RECTAL DISCHARGE [None]
  - MEDICAL DIET [None]
  - GASTROINTESTINAL DISORDER [None]
  - DIARRHOEA [None]
  - ENTERITIS INFECTIOUS [None]
  - PYREXIA [None]
  - MALAISE [None]
  - PAIN [None]
